FAERS Safety Report 9874775 (Version 1)
Quarter: 2014Q1

REPORT INFORMATION
  Report Type: Report from Study
  Country: CA (occurrence: CA)
  Receive Date: 20140206
  Receipt Date: 20140206
  Transmission Date: 20141002
  Serious: Yes (Other)
  Sender: FDA-Public Use
  Company Number: PHHY2013CA155449

PATIENT
  Age: 58 Year
  Sex: Female

DRUGS (5)
  1. CLOZARIL [Suspect]
     Indication: SCHIZOAFFECTIVE DISORDER
     Dosage: 12.5 MG, BID
     Route: 048
     Dates: start: 20130917
  2. CLOZARIL [Suspect]
     Dosage: 62.5 MG, UNK
     Route: 048
  3. CLOZARIL [Suspect]
     Dosage: 37.5 MG, BID
     Route: 048
     Dates: end: 20131009
  4. SEROQUEL [Concomitant]
     Dosage: 900 MG, UNK
  5. HALDOL [Concomitant]
     Dosage: 75 MG, UNK

REACTIONS (8)
  - Urine output increased [Unknown]
  - Urinary incontinence [Recovered/Resolved]
  - Urinary retention [Unknown]
  - Hyperthermia [Recovered/Resolved]
  - Tachycardia [Unknown]
  - Pyrexia [Unknown]
  - Salivary hypersecretion [Recovered/Resolved]
  - Somnolence [Unknown]
